FAERS Safety Report 12232224 (Version 8)
Quarter: 2017Q1

REPORT INFORMATION
  Report Type: Report from Study
  Country: CN (occurrence: CN)
  Receive Date: 20160401
  Receipt Date: 20170317
  Transmission Date: 20170428
  Serious: Yes (Other)
  Sender: FDA-Public Use
  Company Number: PHHY2016CN042844

PATIENT
  Age: 53 Year
  Sex: Male

DRUGS (95)
  1. METHYLPREDNISOLONE. [Suspect]
     Active Substance: METHYLPREDNISOLONE
     Dosage: 500 MG, QD
     Route: 065
     Dates: start: 20160209, end: 20160211
  2. PREDNISONE. [Suspect]
     Active Substance: PREDNISONE
     Indication: PRODUCT USED FOR UNKNOWN INDICATION
     Dosage: 80 MG, QD
     Route: 065
     Dates: start: 20160211, end: 20160212
  3. PREDNISONE. [Suspect]
     Active Substance: PREDNISONE
     Dosage: 40 MG, QD
     Route: 065
     Dates: start: 20160213, end: 20160214
  4. INSULIN [Concomitant]
     Active Substance: INSULIN NOS
     Dosage: 6 IU, QD
     Route: 042
     Dates: start: 20160208, end: 20160212
  5. GLUTATHIONE [Concomitant]
     Active Substance: GLUTATHIONE
     Indication: PROPHYLAXIS
     Dosage: 1.8 G, QD
     Route: 042
     Dates: start: 20160208, end: 20160214
  6. TRANEXAMIC ACID. [Concomitant]
     Active Substance: TRANEXAMIC ACID
     Dosage: 0.4 G, QD
     Route: 042
     Dates: start: 20160317, end: 20160319
  7. TACROLIMUS. [Suspect]
     Active Substance: TACROLIMUS
     Dosage: 5 MG, QD
     Route: 065
     Dates: start: 20160225, end: 20160301
  8. AMBROXOL HYDROCHLORIDE [Concomitant]
     Active Substance: AMBROXOL HYDROCHLORIDE
     Dosage: 30 MG, BID
     Route: 042
     Dates: start: 20160301, end: 20160303
  9. ASPIRIN                            /00346701/ [Concomitant]
     Active Substance: ASCORBIC ACID\ASPIRIN
     Indication: ANTICOAGULANT THERAPY
     Dosage: 100 MG, QD
     Route: 048
     Dates: start: 20160218, end: 20160314
  10. CEFOPERAZONA/SULBACTAM [Concomitant]
     Active Substance: CEFOPERAZONE SODIUM\SULBACTAM SODIUM
     Indication: ANTIINFLAMMATORY THERAPY
     Dosage: 2 G, Q12H
     Route: 042
     Dates: start: 20160211, end: 20160219
  11. INSULIN [Concomitant]
     Active Substance: INSULIN NOS
     Indication: BLOOD GLUCOSE INCREASED
     Dosage: 4 IU, QD
     Route: 042
     Dates: start: 20160208, end: 20160212
  12. METOPROLOL TARTRATE. [Concomitant]
     Active Substance: METOPROLOL TARTRATE
     Indication: BLOOD PRESSURE INCREASED
     Dosage: 25 MG, QD
     Route: 048
     Dates: start: 20160210, end: 20160211
  13. RECOMBINANT HUMAN ERYTHROPOIETIN [Concomitant]
     Active Substance: ERYTHROPOIETIN
     Indication: IMMUNE SYSTEM DISORDER
     Dosage: 10000 IU, QOD
     Route: 042
     Dates: start: 20160208, end: 20160216
  14. PREDNISONE. [Suspect]
     Active Substance: PREDNISONE
     Dosage: 10 MG, QD
     Route: 065
     Dates: start: 20160215, end: 20160216
  15. TACROLIMUS. [Suspect]
     Active Substance: TACROLIMUS
     Dosage: 8 MG, QD
     Route: 065
     Dates: start: 20160218, end: 20160222
  16. TACROLIMUS. [Suspect]
     Active Substance: TACROLIMUS
     Dosage: 6 MG, QD
     Route: 065
     Dates: start: 20160318
  17. RAPAMYCIN [Suspect]
     Active Substance: SIROLIMUS
     Indication: PRODUCT USED FOR UNKNOWN INDICATION
     Dosage: 1 MG, QD
     Route: 065
     Dates: start: 20160516
  18. AMINO ACID [Concomitant]
     Active Substance: AMINO ACIDS
     Indication: SUPPLEMENTATION THERAPY
     Dosage: 250 ML, QD
     Route: 042
     Dates: start: 20160208, end: 20160212
  19. ACARBOSE. [Concomitant]
     Active Substance: ACARBOSE
     Dosage: 100 MG, TID
     Route: 048
     Dates: start: 20160304
  20. DOPAMINE [Concomitant]
     Active Substance: DOPAMINE\DOPAMINE HYDROCHLORIDE
     Indication: BLOOD PRESSURE INCREASED
     Dosage: 100 MG, UNK
     Route: 042
     Dates: start: 20160208, end: 20160208
  21. FUROSEMIDE. [Concomitant]
     Active Substance: FUROSEMIDE
     Dosage: 20 MG, BID
     Route: 042
     Dates: start: 20160307, end: 20160310
  22. GANCICLOVIR. [Concomitant]
     Active Substance: GANCICLOVIR
     Dosage: 300 MG, BID
     Route: 042
     Dates: start: 20160309, end: 20160317
  23. INSULIN [Concomitant]
     Active Substance: INSULIN NOS
     Dosage: 8 IU, TID
     Route: 042
     Dates: start: 20160218, end: 20160224
  24. RECOMBINANT HUMAN ERYTHROPOIETIN [Concomitant]
     Active Substance: ERYTHROPOIETIN
     Dosage: 10000 IU, QOD
     Route: 042
     Dates: start: 20160314, end: 20160328
  25. TORASEMIDE [Concomitant]
     Active Substance: TORSEMIDE
     Indication: DIURETIC THERAPY
     Dosage: 10 MG, BID
     Route: 048
     Dates: start: 20160216, end: 20160218
  26. OMEPRAZOLE SODIUM [Concomitant]
     Active Substance: OMEPRAZOLE SODIUM
     Indication: PROPHYLAXIS
     Dosage: 40 MG, BID
     Route: 042
     Dates: start: 20160208, end: 20160214
  27. IRON SUCROSE [Concomitant]
     Active Substance: IRON SUCROSE
     Indication: SUPPLEMENTATION THERAPY
     Dosage: 100 MG, QD
     Route: 042
     Dates: start: 20160314, end: 20160324
  28. SODIUM BICARBONATE. [Concomitant]
     Active Substance: SODIUM BICARBONATE
     Indication: BLOOD URIC ACID ABNORMAL
     Dosage: 1 G, TID
     Route: 048
     Dates: start: 20160311, end: 20160331
  29. PIPERACILLIN AND TAZOBACTAM [Concomitant]
     Active Substance: PIPERACILLIN SODIUM\TAZOBACTAM SODIUM
     Dosage: 4.5 G, Q12H
     Route: 042
     Dates: start: 20160319, end: 20160324
  30. FUROSEMIDE. [Concomitant]
     Active Substance: FUROSEMIDE
     Dosage: 40 MG, UNK
     Route: 042
     Dates: start: 20160305, end: 20160305
  31. PREDNISONE. [Suspect]
     Active Substance: PREDNISONE
     Dosage: 20 MG, QD
     Route: 065
     Dates: start: 20160214, end: 20160215
  32. AMINO ACID [Concomitant]
     Active Substance: AMINO ACIDS
     Dosage: 250 ML, BID
     Route: 042
     Dates: start: 20160212, end: 20160212
  33. AMBROXOL HYDROCHLORIDE [Concomitant]
     Active Substance: AMBROXOL HYDROCHLORIDE
     Indication: PRODUCTIVE COUGH
     Dosage: 30 MG, BID
     Route: 042
     Dates: start: 20160208, end: 20160217
  34. CEFOPERAZONA/SULBACTAM [Concomitant]
     Active Substance: CEFOPERAZONE SODIUM\SULBACTAM SODIUM
     Indication: HAEMOSTASIS
     Dosage: 80 MG, BID
     Route: 042
     Dates: start: 20160317, end: 20160327
  35. RABEPRAZOLE [Concomitant]
     Active Substance: RABEPRAZOLE
     Indication: PROPHYLAXIS
     Dosage: 20 MG, BID
     Route: 048
     Dates: start: 20160226, end: 20160325
  36. VITAMIN C [Concomitant]
     Active Substance: ASCORBIC ACID
     Indication: IMMUNE SYSTEM DISORDER
     Dosage: 0.1 G, TID
     Route: 048
     Dates: start: 20160331
  37. WARFARIN SODIUM. [Concomitant]
     Active Substance: WARFARIN SODIUM
     Indication: ANTICOAGULANT THERAPY
     Dosage: 1.25 MG, QD
     Route: 048
     Dates: start: 20160219, end: 20160303
  38. DILTIAZEM HYDROCHLORIDE. [Concomitant]
     Active Substance: DILTIAZEM HYDROCHLORIDE
     Indication: BLOOD PRESSURE INCREASED
     Dosage: 30 MG, BID
     Route: 048
     Dates: start: 20160212, end: 20160303
  39. DOMPERIDONE [Concomitant]
     Active Substance: DOMPERIDONE
     Indication: GASTRIC DISORDER
     Dosage: 840 MG, TID
     Route: 048
     Dates: start: 20160304, end: 20160331
  40. METFORMIN [Concomitant]
     Active Substance: METFORMIN HYDROCHLORIDE
     Indication: BLOOD GLUCOSE INCREASED
     Dosage: 500 MG, UNK
     Route: 048
  41. MYFORTIC [Suspect]
     Active Substance: MYCOPHENOLATE SODIUM
     Indication: RENAL TRANSPLANT
     Dosage: 1440 MG, QD
     Route: 065
     Dates: start: 20160207, end: 20160214
  42. BASILIXIMAB [Suspect]
     Active Substance: BASILIXIMAB
     Dosage: 20 MG, QD
     Route: 065
     Dates: start: 20160211, end: 20160211
  43. TACROLIMUS. [Suspect]
     Active Substance: TACROLIMUS
     Dosage: 5 MG, QD
     Route: 065
     Dates: start: 20160301, end: 20160318
  44. ACARBOSE. [Concomitant]
     Active Substance: ACARBOSE
     Indication: BLOOD GLUCOSE INCREASED
     Dosage: 50 MG, TID
     Route: 048
     Dates: start: 20160213, end: 20160303
  45. ALPROSTADIL. [Concomitant]
     Active Substance: ALPROSTADIL
     Indication: PROMOTION OF PERIPHERAL CIRCULATION
     Dosage: 10 UG, QD
     Route: 042
     Dates: start: 20160209, end: 20160214
  46. CLONIDINE HYDROCHLORIDE. [Concomitant]
     Active Substance: CLONIDINE HYDROCHLORIDE
     Indication: ANTIINFLAMMATORY THERAPY
     Dosage: 150 MG, TID
     Route: 048
     Dates: start: 20160216, end: 20160310
  47. INSULIN [Concomitant]
     Active Substance: INSULIN NOS
     Dosage: 4 IU, QD
     Route: 042
     Dates: start: 20160224, end: 20160303
  48. SULFAMETHOXAZOLE SODIUM [Concomitant]
     Indication: INFLAMMATION
     Dosage: 1 DF, BID
     Route: 048
     Dates: start: 20160324, end: 20160331
  49. SULFAMETHOXAZOLE [Concomitant]
     Active Substance: SULFAMETHOXAZOLE
     Indication: INFLAMMATION
     Dosage: 1 DF, BID
     Route: 048
     Dates: start: 20160311, end: 20160312
  50. DEXAMETHASONE. [Concomitant]
     Active Substance: DEXAMETHASONE
     Indication: PYREXIA
     Dosage: 5 MG, UNK
     Route: 042
     Dates: start: 20160314, end: 20160314
  51. ORNIDAZOLE [Concomitant]
     Active Substance: ORNIDAZOLE
     Indication: INFLAMMATION
     Dosage: 250 MG, BID
     Route: 042
     Dates: start: 20160314, end: 20160327
  52. TRANEXAMIC ACID. [Concomitant]
     Active Substance: TRANEXAMIC ACID
     Indication: HAEMOSTASIS
     Dosage: 0.4 G, UNK
     Route: 042
     Dates: start: 20160314, end: 20160314
  53. PENICILLIN [Concomitant]
     Active Substance: PENICILLIN
     Indication: INFLAMMATION
     Dosage: 320 WU, BID
     Route: 042
     Dates: start: 20160309, end: 20160312
  54. CEFACLOR. [Concomitant]
     Active Substance: CEFACLOR
     Indication: INFLAMMATION
     Dosage: 1 DF, BID
     Dates: start: 20170102, end: 20170109
  55. BASILIXIMAB [Suspect]
     Active Substance: BASILIXIMAB
     Indication: PRODUCT USED FOR UNKNOWN INDICATION
     Dosage: 20 MG, QD
     Route: 065
     Dates: start: 20160207, end: 20160207
  56. METHYLPREDNISOLONE. [Suspect]
     Active Substance: METHYLPREDNISOLONE
     Indication: PRODUCT USED FOR UNKNOWN INDICATION
     Dosage: 240 MG, QD
     Route: 065
     Dates: start: 20160207, end: 20160207
  57. METHYLPREDNISOLONE. [Suspect]
     Active Substance: METHYLPREDNISOLONE
     Dosage: 500 MG, QD
     Route: 065
     Dates: start: 20160207, end: 20160207
  58. TACROLIMUS. [Suspect]
     Active Substance: TACROLIMUS
     Indication: PRODUCT USED FOR UNKNOWN INDICATION
     Dosage: 4 MG, QD
     Route: 065
     Dates: start: 20160212, end: 20160218
  59. ALPROSTADIL. [Concomitant]
     Active Substance: ALPROSTADIL
     Indication: SUPPLEMENTATION THERAPY
     Dosage: 10 UG, QD
     Route: 042
     Dates: start: 20160201, end: 20160301
  60. DOPAMINE [Concomitant]
     Active Substance: DOPAMINE\DOPAMINE HYDROCHLORIDE
     Indication: CAPILLARY DISORDER
     Dosage: 100 MG, UNK
     Route: 042
     Dates: start: 20160208, end: 20160212
  61. INSULIN [Concomitant]
     Active Substance: INSULIN NOS
     Dosage: 8 IU, QD
     Route: 042
     Dates: start: 20160224, end: 20160303
  62. IRBESARTAN. [Concomitant]
     Active Substance: IRBESARTAN
     Indication: BLOOD PRESSURE INCREASED
     Dosage: 0.15 G, BID
     Route: 048
     Dates: start: 20160213, end: 20160310
  63. LANSOPRAZOLE. [Concomitant]
     Active Substance: LANSOPRAZOLE
     Dosage: 30 MG, BID
     Route: 048
     Dates: start: 20160325, end: 20170131
  64. METFORMIN HYDROCHLORIDE. [Concomitant]
     Active Substance: METFORMIN HYDROCHLORIDE
     Dosage: 500 MG, TID
     Route: 048
     Dates: start: 20160331
  65. VITAMIN C [Concomitant]
     Active Substance: ASCORBIC ACID
     Indication: SUPPLEMENTATION THERAPY
     Dosage: 2 G, QD
     Route: 042
     Dates: start: 20160208, end: 20160208
  66. PIPERACILLIN AND TAZOBACTAM [Concomitant]
     Active Substance: PIPERACILLIN SODIUM\TAZOBACTAM SODIUM
     Indication: INFLAMMATION
     Dosage: 4.5 G, Q8H
     Route: 042
     Dates: start: 20160312, end: 20160319
  67. TANSHINON [Concomitant]
     Indication: PRODUCT USED FOR UNKNOWN INDICATION
     Dosage: 0.84 G, TID
     Route: 048
     Dates: start: 20160304, end: 20160314
  68. CARBAZOCHROME SODIUM SULFONATE [Concomitant]
     Active Substance: CARBAZOCHROME SODIUM SULFONATE
     Indication: HAEMOSTASIS
     Dosage: 80 MG, BID
     Route: 042
     Dates: start: 20160317, end: 20160327
  69. MYFORTIC [Suspect]
     Active Substance: MYCOPHENOLATE SODIUM
     Dosage: 1080 MG, QD
     Route: 065
     Dates: start: 20160214, end: 20160310
  70. TACROLIMUS. [Suspect]
     Active Substance: TACROLIMUS
     Dosage: 4 MG, QD
     Route: 065
     Dates: start: 20160301, end: 20160314
  71. AMOXICILLIN/CLAVULANIC ACID [Concomitant]
     Active Substance: AMOXICILLIN\CLAVULANIC ACID
     Indication: ANTIINFLAMMATORY THERAPY
     Dosage: 1.2 G, BID
     Route: 042
     Dates: start: 20160208, end: 20160211
  72. BENZBROMARONE [Concomitant]
     Active Substance: BENZBROMARONE
     Indication: BLOOD URIC ACID INCREASED
     Dosage: 50 MG, QD
     Route: 048
     Dates: start: 20160223, end: 20160331
  73. INSULIN [Concomitant]
     Active Substance: INSULIN NOS
     Dosage: 8 IU, TID
     Route: 042
     Dates: start: 20160211, end: 20160217
  74. LANSOPRAZOLE. [Concomitant]
     Active Substance: LANSOPRAZOLE
     Indication: PROPHYLAXIS
     Dosage: 30 MG, BID
     Route: 048
     Dates: start: 20160214, end: 20160219
  75. LEVAMLODIPINE BESILATE [Concomitant]
     Active Substance: LEVAMLODIPINE BESYLATE
     Indication: BLOOD PRESSURE INCREASED
     Dosage: 2.5 MG, BID
     Route: 048
     Dates: start: 20160211, end: 20170131
  76. METFORMIN HYDROCHLORIDE. [Concomitant]
     Active Substance: METFORMIN HYDROCHLORIDE
     Indication: BLOOD GLUCOSE INCREASED
     Dosage: 500 MG, BID
     Route: 048
     Dates: start: 20160216, end: 20160314
  77. PANTOPRAZOLE SODIUM. [Concomitant]
     Active Substance: PANTOPRAZOLE SODIUM
     Indication: PROPHYLAXIS
     Dosage: 60 MG, BID
     Route: 042
     Dates: start: 20160219, end: 20160226
  78. ADRENALINE [Concomitant]
     Active Substance: EPINEPHRINE
     Indication: COUGH
     Dosage: 2.5 MG, BID
     Route: 048
     Dates: start: 20160331
  79. MANNITOL. [Concomitant]
     Active Substance: MANNITOL
     Indication: DEHYDRATION
     Dosage: 125 ML, QD
     Route: 042
     Dates: start: 20160207, end: 20160208
  80. REPAGLINIDE. [Concomitant]
     Active Substance: REPAGLINIDE
     Indication: BLOOD GLUCOSE INCREASED
     Dosage: 0.5 MG, TID
     Route: 048
     Dates: start: 20160310
  81. SODIUM BICARBONATE. [Concomitant]
     Active Substance: SODIUM BICARBONATE
     Indication: ACID BASE BALANCE ABNORMAL
     Dosage: 1 G, TID
     Route: 048
     Dates: start: 20170201
  82. CARBAZOCHROME [Concomitant]
     Active Substance: CARBAZOCHROME
     Indication: COUGH
     Dosage: 2.5 MG, BID
     Route: 048
     Dates: start: 20160331, end: 20160331
  83. FUROSEMIDE. [Concomitant]
     Active Substance: FUROSEMIDE
     Indication: DIURETIC THERAPY
     Dosage: 100 MG, PRN
     Route: 042
     Dates: start: 20160208, end: 20160211
  84. MYFORTIC [Suspect]
     Active Substance: MYCOPHENOLATE SODIUM
     Dosage: 720 MG, QD
     Route: 065
     Dates: start: 20160310
  85. PREDNISONE. [Suspect]
     Active Substance: PREDNISONE
     Dosage: 60 MG, QD
     Route: 065
     Dates: start: 20160212, end: 20160213
  86. TACROLIMUS. [Suspect]
     Active Substance: TACROLIMUS
     Dosage: 7 MG, QD
     Route: 065
     Dates: start: 20160222, end: 20160225
  87. FUROSEMIDE. [Concomitant]
     Active Substance: FUROSEMIDE
     Indication: DIURETIC THERAPY
     Dosage: 20 MG, QD
     Route: 042
     Dates: start: 20160224, end: 20160303
  88. GANCICLOVIR. [Concomitant]
     Active Substance: GANCICLOVIR
     Indication: ANTIVIRAL TREATMENT
     Dosage: 300 MG, BID
     Route: 042
     Dates: start: 20160212, end: 20160226
  89. ALBUMIN (HUMAN) [Concomitant]
     Active Substance: ALBUMIN HUMAN
     Indication: SUPPLEMENTATION THERAPY
     Dosage: 12.5 G, QD
     Route: 042
     Dates: start: 20160208, end: 20160209
  90. ALBUMIN (HUMAN) [Concomitant]
     Active Substance: ALBUMIN HUMAN
     Dosage: 10 G, QD
     Route: 042
     Dates: start: 20160209, end: 20160222
  91. INSULIN [Concomitant]
     Active Substance: INSULIN NOS
     Dosage: 10 IU, TID
     Route: 042
     Dates: start: 20160217, end: 20160218
  92. METOPROLOL TARTRATE. [Concomitant]
     Active Substance: METOPROLOL TARTRATE
     Dosage: 25 MG, BID
     Route: 048
     Dates: start: 20160211
  93. VITAMIN B6 [Concomitant]
     Active Substance: PYRIDOXINE HYDROCHLORIDE
     Indication: SUPPLEMENTATION THERAPY
     Dosage: 0.2 G, QD
     Route: 042
     Dates: start: 20160208, end: 20160208
  94. PROTAMINE [Concomitant]
     Active Substance: PROTAMINE
     Indication: NUTRITIONAL SUPPLEMENTATION
     Dosage: 50 MG, UNK
     Route: 042
     Dates: start: 20160207, end: 20160207
  95. TRANEXAMIC ACID. [Concomitant]
     Active Substance: TRANEXAMIC ACID
     Dosage: 0.4 G, UNK
     Route: 042
     Dates: start: 20160321, end: 20160321

REACTIONS (12)
  - Blood albumin decreased [Unknown]
  - Incision site pain [Recovering/Resolving]
  - Nasopharyngitis [Recovering/Resolving]
  - Blood urea increased [Unknown]
  - Kidney infection [Recovering/Resolving]
  - Glucose tolerance impaired [Not Recovered/Not Resolved]
  - C-reactive protein increased [Unknown]
  - Pyrexia [Recovering/Resolving]
  - Haemoglobin decreased [Unknown]
  - Cough [Recovering/Resolving]
  - Diabetes mellitus [Not Recovered/Not Resolved]
  - Lymphocyte count decreased [Unknown]

NARRATIVE: CASE EVENT DATE: 20160208
